FAERS Safety Report 5517306-5 (Version None)
Quarter: 2007Q4

REPORT INFORMATION
  Report Type: 
  Country: None (occurrence: None)
  Receive Date: 20071114
  Receipt Date: 20071011
  Transmission Date: 20080405
  Serious: No
  Sender: FDA-Public Use
  Company Number: A0687061A

PATIENT
  Age: 70 Year
  Sex: Female

DRUGS (3)
  1. COMMIT [Suspect]
     Dates: end: 20071009
  2. NICODERM CQ [Suspect]
     Dates: start: 20070707
  3. NICODERM CQ [Suspect]
     Dates: start: 20070707

REACTIONS (5)
  - APPLICATION SITE ERYTHEMA [None]
  - APPLICATION SITE PRURITUS [None]
  - HYPERSENSITIVITY [None]
  - INTENTIONAL DRUG MISUSE [None]
  - NICOTINE DEPENDENCE [None]
